FAERS Safety Report 10398326 (Version 5)
Quarter: 2020Q3

REPORT INFORMATION
  Report Type: Report from Study
  Country: ZA (occurrence: ZA)
  Receive Date: 20140821
  Receipt Date: 20140922
  Transmission Date: 20201105
  Serious: Yes (Hospitalization)
  Sender: FDA-Public Use
  Company Number: ZA-JNJFOC-20140814241

PATIENT
  Age: 36 Year
  Sex: Male
  Weight: 83 kg

DRUGS (9)
  1. SCOPEX [Concomitant]
     Indication: CROHN^S DISEASE
     Route: 048
     Dates: start: 20140116
  2. USTEKINUMAB [Suspect]
     Active Substance: USTEKINUMAB
     Indication: CROHN^S DISEASE
     Route: 065
     Dates: start: 20140723
  3. MEDROL [Concomitant]
     Active Substance: METHYLPREDNISOLONE
     Route: 041
     Dates: start: 20140808, end: 20140810
  4. AVELON [Concomitant]
     Active Substance: MOXIFLOXACIN HYDROCHLORIDE
     Route: 048
     Dates: start: 20140808, end: 20140818
  5. NASONEX [Concomitant]
     Active Substance: MOMETASONE FUROATE
     Route: 045
     Dates: start: 20140808
  6. ILIADIN [Concomitant]
     Route: 045
     Dates: start: 20140808
  7. ENTOCORD [Concomitant]
     Indication: CROHN^S DISEASE
     Route: 048
     Dates: start: 20130801
  8. USTEKINUMAB [Suspect]
     Active Substance: USTEKINUMAB
     Indication: CROHN^S DISEASE
     Dosage: FREQUENCY? 8 WEEKLY/ 12 WEEKLY
     Route: 065
     Dates: start: 20131111
  9. IMODIUM [Concomitant]
     Active Substance: LOPERAMIDE HYDROCHLORIDE
     Indication: CROHN^S DISEASE
     Route: 048
     Dates: start: 20140116

REACTIONS (1)
  - Acute sinusitis [Recovered/Resolved]

NARRATIVE: CASE EVENT DATE: 20140808
